FAERS Safety Report 19169267 (Version 1)
Quarter: 2021Q2

REPORT INFORMATION
  Report Type: Spontaneous
  Country: CN (occurrence: CN)
  Receive Date: 20210422
  Receipt Date: 20210422
  Transmission Date: 20210717
  Serious: Yes (Hospitalization)
  Sender: FDA-Public Use
  Company Number: CN-PFIZER INC-2021395348

PATIENT
  Age: 19 Year
  Sex: Female

DRUGS (2)
  1. SUNITINIB MALATE. [Suspect]
     Active Substance: SUNITINIB MALATE
     Indication: RENAL CELL CARCINOMA
     Dosage: 50.000 MG, 1X/DAY
     Route: 048
     Dates: start: 20210306, end: 20210327
  2. SINTILIMAB. [Concomitant]
     Active Substance: SINTILIMAB
     Indication: RENAL CELL CARCINOMA

REACTIONS (2)
  - Hepatic function abnormal [Recovering/Resolving]
  - Liver injury [Recovering/Resolving]

NARRATIVE: CASE EVENT DATE: 20210327
